FAERS Safety Report 18099501 (Version 1)
Quarter: 2020Q3

REPORT INFORMATION
  Report Type: Spontaneous
  Country: US (occurrence: US)
  Receive Date: 20200731
  Receipt Date: 20200731
  Transmission Date: 20201103
  Serious: No
  Sender: FDA-Public Use
  Company Number: US-BAUSCH-BL-2020-020697

PATIENT
  Age: 85 Year
  Sex: Female

DRUGS (3)
  1. TIMOLOL. [Concomitant]
     Active Substance: TIMOLOL
     Indication: PRODUCT USED FOR UNKNOWN INDICATION
     Route: 047
  2. VYZULTA [Suspect]
     Active Substance: LATANOPROSTENE BUNOD
     Dosage: DROP IN BOTH EYES BEFORE BEDTIME
     Route: 047
     Dates: start: 20200712
  3. VYZULTA [Suspect]
     Active Substance: LATANOPROSTENE BUNOD
     Indication: GLAUCOMA
     Dosage: DROP IN BOTH EYES BEFORE BEDTIME
     Route: 047
     Dates: start: 2020, end: 2020

REACTIONS (5)
  - Feeling cold [Unknown]
  - Chills [Recovered/Resolved]
  - Tremor [Recovered/Resolved]
  - Dry mouth [Unknown]
  - Sinus congestion [Unknown]

NARRATIVE: CASE EVENT DATE: 202006
